FAERS Safety Report 8259876-2 (Version None)
Quarter: 2012Q2

REPORT INFORMATION
  Report Type: 
  Country: None (occurrence: None)
  Receive Date: 20120404
  Receipt Date: 20120330
  Transmission Date: 20120825
  Serious: Yes (Hospitalization)
  Sender: FDA-Public Use
  Company Number: JP-GLAXOSMITHKLINE-B0739157A

PATIENT
  Sex: Female

DRUGS (7)
  1. PHENYTOIN [Concomitant]
     Indication: PARTIAL SEIZURES
     Route: 048
     Dates: end: 20110702
  2. CLONAZEPAM [Concomitant]
     Indication: PARTIAL SEIZURES
     Dosage: 1MG PER DAY
     Route: 048
  3. MYSTAN [Concomitant]
     Indication: PARTIAL SEIZURES
     Route: 048
  4. DIAMOX [Concomitant]
     Indication: PARTIAL SEIZURES
     Route: 048
  5. L-CARTIN [Concomitant]
     Indication: PARTIAL SEIZURES
     Route: 048
  6. VALPROATE SODIUM [Concomitant]
     Indication: PARTIAL SEIZURES
     Dosage: 600MG PER DAY
     Route: 048
  7. LAMICTAL [Suspect]
     Indication: PARTIAL SEIZURES
     Dosage: 25MG PER DAY
     Route: 048
     Dates: start: 20110530, end: 20110704

REACTIONS (23)
  - ORAL MUCOSA EROSION [None]
  - SCAB [None]
  - OCULAR HYPERAEMIA [None]
  - ERYTHEMA [None]
  - LYMPHOCYTE COUNT DECREASED [None]
  - ASPARTATE AMINOTRANSFERASE DECREASED [None]
  - RASH [None]
  - ERYTHEMA OF EYELID [None]
  - EYE DISCHARGE [None]
  - LIP EROSION [None]
  - APOPTOSIS [None]
  - STEVENS-JOHNSON SYNDROME [None]
  - WHITE BLOOD CELL COUNT INCREASED [None]
  - MONOCYTE COUNT DECREASED [None]
  - PAPULE [None]
  - BLOOD LACTATE DEHYDROGENASE DECREASED [None]
  - GAMMA-GLUTAMYLTRANSFERASE INCREASED [None]
  - CONJUNCTIVAL HYPERAEMIA [None]
  - BASOPHIL COUNT INCREASED [None]
  - C-REACTIVE PROTEIN INCREASED [None]
  - EYELID EROSION [None]
  - NEUTROPHIL PERCENTAGE INCREASED [None]
  - ALANINE AMINOTRANSFERASE INCREASED [None]
